FAERS Safety Report 11010129 (Version 4)
Quarter: 2015Q2

REPORT INFORMATION
  Report Type: Spontaneous
  Country: FR (occurrence: FR)
  Receive Date: 20150410
  Receipt Date: 20150424
  Transmission Date: 20150821
  Serious: Yes (Life-Threatening, Hospitalization)
  Sender: FDA-Public Use
  Company Number: FR-PFIZER INC-2015121861

PATIENT
  Age: 82 Year
  Sex: Male

DRUGS (11)
  1. DIFFU K [Interacting]
     Active Substance: POTASSIUM CHLORIDE
     Indication: OEDEMA PERIPHERAL
     Dosage: 600 MG, 2X/DAY
     Route: 048
  2. MODOPAR [Concomitant]
     Active Substance: BENSERAZIDE HYDROCHLORIDE\LEVODOPA
     Dosage: UNK
  3. TILDIEM [Concomitant]
     Active Substance: DILTIAZEM HYDROCHLORIDE
     Dosage: UNK
  4. TRIATEC [Interacting]
     Active Substance: RAMIPRIL
     Dosage: 2.5 MG, 1X/DAY
     Route: 048
  5. TRIVASTAL [Concomitant]
     Active Substance: PIRIBEDIL
     Dosage: 50 MG, UNK
  6. DIGOXINE [Interacting]
     Active Substance: DIGOXIN
     Indication: ATRIAL FIBRILLATION
     Dosage: 0.25 MG, 1X/DAY
     Route: 048
  7. OMEPRAZOLE. [Concomitant]
     Active Substance: OMEPRAZOLE
     Dosage: UNK
  8. ESIDREX [Concomitant]
     Active Substance: HYDROCHLOROTHIAZIDE
     Dosage: UNK
  9. PREVISCAN [Concomitant]
     Active Substance: FLUINDIONE
     Dosage: 20 MG, UNK
  10. LASILIX [Concomitant]
     Active Substance: FUROSEMIDE
     Indication: OEDEMA PERIPHERAL
     Dosage: 80 MG, 2X/DAY
  11. ALDACTONE [Suspect]
     Active Substance: SPIRONOLACTONE
     Dosage: 50 MG, 1X/DAY
     Route: 048
     Dates: end: 201406

REACTIONS (3)
  - Drug interaction [Recovered/Resolved]
  - Hyperkalaemia [Recovered/Resolved]
  - Cardio-respiratory arrest [Recovered/Resolved]

NARRATIVE: CASE EVENT DATE: 20140524
